FAERS Safety Report 6579923-3 (Version None)
Quarter: 2010Q1

REPORT INFORMATION
  Report Type: 
  Country: None (occurrence: None)
  Receive Date: 20100212
  Receipt Date: 20100203
  Transmission Date: 20100710
  Serious: Yes (Other)
  Sender: FDA-Public Use
  Company Number: GB-JNJCH-2008019995

PATIENT
  Age: 79 Year
  Sex: Male

DRUGS (19)
  1. PHENYLEPHRINE [Suspect]
     Indication: CATARACT OPERATION
     Dosage: TEXT:10% UNSPECIFIED
     Route: 031
     Dates: start: 20080319, end: 20080319
  2. ADRENALINE [Suspect]
     Indication: CATARACT OPERATION
     Dosage: TEXT:UNSPECIFIED
     Route: 031
     Dates: start: 20080319, end: 20090319
  3. CEFUROXIME [Suspect]
     Indication: CATARACT OPERATION
     Dosage: TEXT:250MG
     Route: 031
     Dates: start: 20080319, end: 20090319
  4. HYALURONATE SODIUM [Suspect]
     Indication: CATARACT OPERATION
     Dosage: TEXT:UNSPECIFIED
     Route: 031
     Dates: start: 20080319, end: 20080319
  5. SALT SOLUTIONS [Suspect]
     Indication: CATARACT OPERATION
     Dosage: TEXT:UNSPECIFIED
     Route: 031
     Dates: start: 20080319, end: 20080319
  6. ASPIRIN [Concomitant]
     Indication: DRUG USE FOR UNKNOWN INDICATION
     Dosage: TEXT:75MG
     Route: 048
  7. ATENOLOL [Concomitant]
     Indication: DRUG USE FOR UNKNOWN INDICATION
     Dosage: TEXT:50MG
     Route: 048
  8. CYCLOPENTOLATE HCL [Concomitant]
     Indication: CYCLOPLEGIA
     Dosage: TEXT:1%
     Route: 047
     Dates: start: 20080319, end: 20080319
  9. DIAMOX SRC [Concomitant]
     Indication: DRUG USE FOR UNKNOWN INDICATION
     Dosage: TEXT:250MG
     Route: 065
     Dates: start: 20080319, end: 20080319
  10. GLICLAZIDE [Concomitant]
     Indication: DRUG USE FOR UNKNOWN INDICATION
     Dosage: TEXT:80MG
     Route: 048
  11. HYALASE [Concomitant]
     Indication: LOCAL ANAESTHESIA
     Route: 065
     Dates: start: 20080319, end: 20080319
  12. LIDOCAINE [Concomitant]
     Indication: LOCAL ANAESTHESIA
     Dosage: TEXT:2%
     Route: 065
     Dates: start: 20080319, end: 20080319
  13. MAXITROL [Concomitant]
     Indication: DRUG USE FOR UNKNOWN INDICATION
     Dosage: TEXT:1DF
     Route: 047
  14. METFORMIN [Concomitant]
     Indication: DRUG USE FOR UNKNOWN INDICATION
     Route: 048
  15. POVIDONE IODINE [Concomitant]
     Indication: DRUG USE FOR UNKNOWN INDICATION
     Route: 061
     Dates: start: 20080319, end: 20080319
  16. RAMIPRIL [Concomitant]
     Indication: DRUG USE FOR UNKNOWN INDICATION
     Route: 048
  17. SIMVASTATIN [Concomitant]
     Indication: DRUG USE FOR UNKNOWN INDICATION
     Route: 048
  18. VOLTAREN [Concomitant]
     Indication: DRUG USE FOR UNKNOWN INDICATION
     Route: 047
     Dates: start: 20080319, end: 20080319
  19. WATER [Concomitant]
     Indication: MEDICATION DILUTION
     Dosage: TEXT:UNKNOWN
     Route: 065
     Dates: start: 20080319, end: 20080319

REACTIONS (4)
  - BLINDNESS [None]
  - RETINAL INJURY [None]
  - RETINOGRAM ABNORMAL [None]
  - VISUAL ACUITY REDUCED [None]
